FAERS Safety Report 6745244-9 (Version None)
Quarter: 2010Q2

REPORT INFORMATION
  Report Type: 
  Country: None (occurrence: None)
  Receive Date: 20100528
  Receipt Date: 20100519
  Transmission Date: 20101027
  Serious: No
  Sender: FDA-Public Use
  Company Number: US-BIOGENIDEC-2010BI016836

PATIENT
  Age: 45 Year
  Sex: Female

DRUGS (3)
  1. TYSABRI [Suspect]
     Indication: MULTIPLE SCLEROSIS
     Route: 042
     Dates: start: 20100105
  2. LYRICA [Concomitant]
     Indication: HYPOAESTHESIA
  3. LYRICA [Concomitant]
     Indication: PARAESTHESIA

REACTIONS (1)
  - FATIGUE [None]
